FAERS Safety Report 10554144 (Version 2)
Quarter: 2014Q4

REPORT INFORMATION
  Report Type: Spontaneous
  Country: US (occurrence: US)
  Receive Date: 20141030
  Receipt Date: 20141030
  Transmission Date: 20150529
  Serious: Yes (Hospitalization, Other)
  Sender: FDA-Public Use
  Company Number: US-GLAXOSMITHKLINE-A0775422A

PATIENT
  Sex: Male

DRUGS (7)
  1. METFORMIN [Concomitant]
     Active Substance: METFORMIN HYDROCHLORIDE
     Dates: start: 20050527
  2. AVANDIA [Suspect]
     Active Substance: ROSIGLITAZONE MALEATE
     Indication: TYPE 2 DIABETES MELLITUS
     Route: 048
     Dates: start: 20050527, end: 20070214
  3. GLARGINE [Concomitant]
     Dates: start: 20010709
  4. TRICOR [Concomitant]
     Active Substance: FENOFIBRATE
     Dates: start: 20020726, end: 20031210
  5. LIPITOR [Concomitant]
     Active Substance: ATORVASTATIN CALCIUM
     Dates: start: 20000204, end: 20040804
  6. AVANDAMET [Suspect]
     Active Substance: METFORMIN HYDROCHLORIDE\ROSIGLITAZONE MALEATE
     Indication: TYPE 2 DIABETES MELLITUS
     Dosage: 500 MG, UNK
     Route: 048
     Dates: start: 200309, end: 20050830
  7. PRANDIN [Concomitant]
     Active Substance: REPAGLINIDE
     Dates: start: 20030918, end: 20040115

REACTIONS (2)
  - Myocardial infarction [Unknown]
  - Cardiac disorder [Unknown]
